FAERS Safety Report 6159481-8 (Version None)
Quarter: 2009Q2

REPORT INFORMATION
  Report Type: 
  Country: None (occurrence: None)
  Receive Date: 20090420
  Receipt Date: 20080508
  Transmission Date: 20091009
  Serious: Yes (Hospitalization)
  Sender: FDA-Public Use
  Company Number: US-ASTRAZENECA-2007UW04982

PATIENT
  Age: 16019 Day
  Sex: Female
  Weight: 94.3 kg

DRUGS (17)
  1. SEROQUEL [Suspect]
     Indication: ANXIETY
     Route: 048
     Dates: start: 20031101, end: 20050301
  2. SEROQUEL [Suspect]
     Indication: DEPRESSION
     Route: 048
     Dates: start: 20031101, end: 20050301
  3. SEROQUEL [Suspect]
     Dosage: 25-100 MG
     Route: 048
     Dates: start: 20031120
  4. SEROQUEL [Suspect]
     Dosage: 25-100 MG
     Route: 048
     Dates: start: 20031120
  5. TIAZAC [Concomitant]
  6. ATACAND [Concomitant]
  7. HYDROCHLOROTHIAZIDE [Concomitant]
  8. GLUCOPHAGE [Concomitant]
  9. DIFLUCAN [Concomitant]
  10. NORVASC [Concomitant]
  11. HUMULIN R [Concomitant]
  12. DETROL [Concomitant]
  13. PROZAC [Concomitant]
  14. BENICAR [Concomitant]
  15. PREMARIN [Concomitant]
  16. METOPROLOL SUCCINATE [Concomitant]
  17. FLUOXETINE [Concomitant]

REACTIONS (12)
  - BEREAVEMENT REACTION [None]
  - BLOOD PRESSURE INCREASED [None]
  - COUGH [None]
  - DEPRESSED MOOD [None]
  - DIABETES MELLITUS [None]
  - DYSPNOEA [None]
  - HALLUCINATIONS, MIXED [None]
  - IRRITABILITY [None]
  - MAJOR DEPRESSION [None]
  - PALPITATIONS [None]
  - URINARY INCONTINENCE [None]
  - VULVOVAGINAL CANDIDIASIS [None]
